FAERS Safety Report 18589382 (Version 1)
Quarter: 2020Q4

REPORT INFORMATION
  Report Type: Other
  Country: US (occurrence: US)
  Receive Date: 20201208
  Receipt Date: 20201208
  Transmission Date: 20210114
  Serious: Yes (Other)
  Sender: FDA-Public Use
  Company Number: US-ROCHE-2727866

PATIENT
  Age: 36 Year
  Sex: Female

DRUGS (1)
  1. TRASTUZUMAB EMTANSINE [Suspect]
     Active Substance: ADO-TRASTUZUMAB EMTANSINE
     Indication: HER2 POSITIVE BREAST CANCER
     Dosage: LAST DOSE OF T-DM1 WAS IN OCT/2019
     Route: 065

REACTIONS (3)
  - Pulmonary arterial hypertension [Recovered/Resolved]
  - Thrombocytopenia [Unknown]
  - Epistaxis [Unknown]
